FAERS Safety Report 11135973 (Version 1)
Quarter: 2015Q2

REPORT INFORMATION
  Report Type: Spontaneous
  Country: JP (occurrence: JP)
  Receive Date: 20150526
  Receipt Date: 20150526
  Transmission Date: 20150821
  Serious: Yes (Hospitalization)
  Sender: FDA-Public Use
  Company Number: JP-TEVA-2015-JP-000616J

PATIENT
  Age: 82 Year
  Sex: Male

DRUGS (1)
  1. FAMOTIDINE TABLET 20MG ^TEVA^ [Suspect]
     Active Substance: FAMOTIDINE
     Indication: PRODUCT USED FOR UNKNOWN INDICATION
     Route: 065
     Dates: start: 201402, end: 201404

REACTIONS (1)
  - Erythema multiforme [Unknown]
